FAERS Safety Report 10332087 (Version 1)
Quarter: 2014Q3

REPORT INFORMATION
  Report Type: Spontaneous
  Country: GB (occurrence: GB)
  Receive Date: 20140722
  Receipt Date: 20140722
  Transmission Date: 20150326
  Serious: Yes (Other)
  Sender: FDA-Public Use
  Company Number: GB-TEVA-493827ISR

PATIENT
  Age: 56 Year

DRUGS (2)
  1. LIXISENATIDE [Interacting]
     Active Substance: LIXISENATIDE
     Indication: DIABETES MELLITUS
     Dosage: 10 MILLIGRAM DAILY;
     Route: 058
     Dates: start: 20140613
  2. WARFARIN [Suspect]
     Active Substance: WARFARIN
     Indication: ATRIAL FIBRILLATION
     Route: 048

REACTIONS (2)
  - Inhibitory drug interaction [Not Recovered/Not Resolved]
  - Anticoagulation drug level below therapeutic [Not Recovered/Not Resolved]
